FAERS Safety Report 9182299 (Version 1)
Quarter: 2013Q1

REPORT INFORMATION
  Report Type: Spontaneous
  Country: US (occurrence: None)
  Receive Date: 20130321
  Receipt Date: 20130321
  Transmission Date: 20140127
  Serious: Yes (Life-Threatening, Hospitalization)
  Sender: FDA-Public Use
  Company Number: None

PATIENT
  Age: 76 Year
  Sex: Female

DRUGS (1)
  1. INDOMETHACIN [Suspect]
     Indication: GOUT
     Dosage: 50 MG CAPSUL TEV 1 CAP 3X DAILY ORAL
     Route: 048
     Dates: start: 20130222

REACTIONS (10)
  - Dizziness [None]
  - Asthenia [None]
  - Nausea [None]
  - Abasia [None]
  - Dysphagia [None]
  - Tremor [None]
  - Wheelchair user [None]
  - Dyspnoea [None]
  - Oxygen saturation decreased [None]
  - Speech disorder [None]
